FAERS Safety Report 4510474-3 (Version None)
Quarter: 2004Q4

REPORT INFORMATION
  Report Type: 
  Country: None (occurrence: None)
  Receive Date: 20041124
  Receipt Date: 20041112
  Transmission Date: 20050328
  Serious: Yes (Hospitalization)
  Sender: FDA-Public Use
  Company Number: FR-GLAXOSMITHKLINE-B0357223A

PATIENT
  Age: 19 Year
  Sex: Female

DRUGS (9)
  1. IMUREL [Suspect]
     Dosage: 2UNIT PER DAY
     Route: 048
     Dates: start: 20030601, end: 20040826
  2. CLAMOXYL [Suspect]
     Dosage: 3G FOUR TIMES PER DAY
     Route: 042
     Dates: start: 20040824, end: 20040827
  3. GENTAMYCINE [Suspect]
     Indication: PNEUMOCOCCAL INFECTION
     Dosage: 200MG PER DAY
     Dates: start: 20040824, end: 20040827
  4. OMEPRAZOLE [Suspect]
     Dosage: 20MG PER DAY
     Route: 048
     Dates: end: 20040827
  5. PLAQUENIL [Suspect]
     Dosage: 2UNIT FIVE TIMES PER DAY
     Route: 048
     Dates: start: 20030601
  6. CORTANCYL [Concomitant]
     Route: 065
  7. FOZITEC [Concomitant]
     Route: 065
  8. GARDENAL [Concomitant]
     Route: 065
  9. KARDEGIC [Concomitant]
     Route: 065

REACTIONS (5)
  - ABDOMINAL PAIN [None]
  - HYPERTHERMIA [None]
  - LEUKOPENIA [None]
  - NEUTROPENIA [None]
  - PNEUMOCOCCAL SEPSIS [None]
